FAERS Safety Report 4511672-5 (Version None)
Quarter: 2004Q4

REPORT INFORMATION
  Report Type: 
  Country: None (occurrence: None)
  Receive Date: 20041119
  Receipt Date: 20041112
  Transmission Date: 20050328
  Serious: Yes (Hospitalization)
  Sender: FDA-Public Use
  Company Number: RENA-11176

PATIENT
  Age: 83 Year
  Sex: Female

DRUGS (9)
  1. PHOSBLOCK - 250 MG TABLETS [Suspect]
     Indication: HYPERPHOSPHATAEMIA
     Dosage: 0.5 G TID PO
     Route: 048
     Dates: start: 20040615, end: 20040902
  2. EPOETIN ALFA [Concomitant]
  3. CALCITRIOL [Concomitant]
  4. NIFEDIPINE [Concomitant]
  5. TELMISARTAN [Concomitant]
  6. TEPRENONE [Concomitant]
  7. SENNOSIDE [Concomitant]
  8. RILMAZAFONE HCL [Concomitant]
  9. SODIUM PICOSULFATE [Concomitant]

REACTIONS (3)
  - FAECALOMA [None]
  - GASTROINTESTINAL HAEMORRHAGE [None]
  - ILEUS [None]
